FAERS Safety Report 7030794-0 (Version None)
Quarter: 2010Q4

REPORT INFORMATION
  Report Type: 
  Country: None (occurrence: None)
  Receive Date: 20101006
  Receipt Date: 20100924
  Transmission Date: 20110411
  Serious: No
  Sender: FDA-Public Use
  Company Number: US-PFIZER INC-2010122140

PATIENT
  Sex: Female
  Weight: 61.224 kg

DRUGS (4)
  1. LYRICA [Suspect]
     Indication: GENERALISED ANXIETY DISORDER
     Dosage: 50 MG, DAILY
     Route: 048
     Dates: start: 20100914
  2. LYRICA [Suspect]
     Dosage: 50 MG, 2X/DAY
     Route: 048
     Dates: start: 20100920
  3. CYMBALTA [Concomitant]
     Indication: DEPRESSION
     Dosage: 90 MG, DAILY
     Route: 048
     Dates: start: 20060101
  4. TRAZODONE HYDROCHLORIDE [Concomitant]
     Indication: DEPRESSION
     Dosage: 150 MG, DAILY
     Route: 048
     Dates: start: 20100914

REACTIONS (3)
  - COGNITIVE DISORDER [None]
  - SPEECH DISORDER [None]
  - TREMOR [None]
